FAERS Safety Report 24335994 (Version 1)
Quarter: 2024Q3

REPORT INFORMATION
  Report Type: Spontaneous
  Country: US (occurrence: US)
  Receive Date: 20240919
  Receipt Date: 20240919
  Transmission Date: 20241017
  Serious: Yes (Other)
  Sender: JOHNSON AND JOHNSON
  Company Number: US-JNJFOC-20240921573

PATIENT

DRUGS (1)
  1. BALVERSA [Suspect]
     Active Substance: ERDAFITINIB
     Indication: Sarcoma uterus
     Route: 048

REACTIONS (4)
  - Fracture [Unknown]
  - Fall [Unknown]
  - Vasculitis [Unknown]
  - Off label use [Unknown]
